FAERS Safety Report 12304176 (Version 1)
Quarter: 2016Q2

REPORT INFORMATION
  Report Type: Spontaneous
  Country: US (occurrence: US)
  Receive Date: 20160426
  Receipt Date: 20160426
  Transmission Date: 20160815
  Serious: No
  Sender: FDA-Public Use
  Company Number: US-JNJFOC-20160327367

PATIENT
  Sex: Female
  Weight: 47.63 kg

DRUGS (3)
  1. METHYLPHENIDATE HYDROCHLORIDE. [Suspect]
     Active Substance: METHYLPHENIDATE HYDROCHLORIDE
     Indication: ATTENTION DEFICIT/HYPERACTIVITY DISORDER
     Route: 048
  2. VALIUM [Concomitant]
     Active Substance: DIAZEPAM
     Indication: ANXIETY
     Dosage: SOMETIMES 2 OR 3 TIMES DAILY
     Dates: start: 2015
  3. GABAPENTIN. [Concomitant]
     Active Substance: GABAPENTIN
     Indication: ANXIETY
     Dosage: 2 OR 3 TIMES DAILY
     Route: 048

REACTIONS (6)
  - Osteoporosis [Not Recovered/Not Resolved]
  - Weight increased [Not Recovered/Not Resolved]
  - Irritable bowel syndrome [Unknown]
  - Fractured coccyx [Recovered/Resolved]
  - Compression fracture [Recovering/Resolving]
  - Pain [Not Recovered/Not Resolved]

NARRATIVE: CASE EVENT DATE: 2014
